FAERS Safety Report 17979554 (Version 1)
Quarter: 2020Q3

REPORT INFORMATION
  Report Type: Spontaneous
  Country: FR (occurrence: FR)
  Receive Date: 20200703
  Receipt Date: 20200703
  Transmission Date: 20201103
  Serious: Yes (Hospitalization)
  Sender: FDA-Public Use
  Company Number: FR-TEVA-2020-FR-1794317

PATIENT
  Age: 61 Year
  Sex: Female
  Weight: 61 kg

DRUGS (17)
  1. ZESTORETIC [Suspect]
     Active Substance: HYDROCHLOROTHIAZIDE\LISINOPRIL
     Indication: HYPERTENSION
     Dosage: 1 DOSAGEFORM
     Route: 048
     Dates: end: 20200609
  2. DOMPERIDONE [Concomitant]
     Active Substance: DOMPERIDONE
  3. EPIRUBICINE [Suspect]
     Active Substance: EPIRUBICIN
     Indication: BREAST CANCER
     Dosage: 830 MILLIGRAM
     Route: 042
     Dates: start: 20200527, end: 20200527
  4. FLUOROURACILE [Suspect]
     Active Substance: FLUOROURACIL
     Indication: BREAST CANCER
     Dosage: 830 MILLIGRAM
     Route: 042
     Dates: start: 20200527, end: 20200527
  5. DEXERYL, CREME EN TUBE [Concomitant]
  6. EMEND [Suspect]
     Active Substance: APREPITANT
     Indication: CHEMOTHERAPY SIDE EFFECT PROPHYLAXIS
     Dosage: 125 MILLIGRAM
     Route: 048
     Dates: start: 20200527, end: 20200530
  7. SOLU?MEDROL [Suspect]
     Active Substance: METHYLPREDNISOLONE SODIUM SUCCINATE
     Indication: CHEMOTHERAPY SIDE EFFECT PROPHYLAXIS
     Dosage: 80 MILLIGRAM
     Route: 042
     Dates: start: 20200527, end: 20200527
  8. ONDANSETRON [Suspect]
     Active Substance: ONDANSETRON
     Indication: CHEMOTHERAPY SIDE EFFECT PROPHYLAXIS
     Dosage: 8 MILLIGRAM
     Route: 042
     Dates: start: 20200527, end: 20200528
  9. PRIMPERAN [Concomitant]
     Active Substance: METOCLOPRAMIDE HYDROCHLORIDE
  10. FORLAX [Suspect]
     Active Substance: POLYETHYLENE GLYCOL 4000
     Indication: CHEMOTHERAPY SIDE EFFECT PROPHYLAXIS
     Dosage: IF NECESSARY
     Route: 048
  11. ASPEGIC [Concomitant]
  12. SMECTA [Concomitant]
     Active Substance: MONTMORILLONITE
  13. TIORFAN [Concomitant]
     Active Substance: RACECADOTRIL
  14. CYCLOPHOSPHAMIDE. [Suspect]
     Active Substance: CYCLOPHOSPHAMIDE
     Indication: BREAST CANCER
     Dosage: 160 MILLIGRAM
     Route: 042
     Dates: start: 20200527, end: 20200527
  15. LANSOYL [Concomitant]
     Active Substance: MINERAL OIL
  16. PROPRANOLOL [Concomitant]
     Active Substance: PROPRANOLOL HYDROCHLORIDE
  17. EMLAPATCH 5 POUR CENT, PANSEMENT ADHESIF CUTAN? [Concomitant]

REACTIONS (5)
  - Hyponatraemia [Recovered/Resolved]
  - Fall [Recovered/Resolved]
  - Loss of consciousness [Recovered/Resolved]
  - Seizure [Recovered/Resolved]
  - Confusional state [Recovered/Resolved]

NARRATIVE: CASE EVENT DATE: 20200529
